FAERS Safety Report 23561442 (Version 1)
Quarter: 2024Q1

REPORT INFORMATION
  Report Type: Spontaneous
  Country: CA (occurrence: CA)
  Receive Date: 20240224
  Receipt Date: 20240224
  Transmission Date: 20240409
  Serious: Yes (Hospitalization)
  Sender: FDA-Public Use
  Company Number: CA-TEVA-VS-3160099

PATIENT
  Age: 70 Year
  Sex: Female

DRUGS (1)
  1. MIRTAZAPINE [Suspect]
     Active Substance: MIRTAZAPINE
     Route: 065

REACTIONS (3)
  - Fall [Unknown]
  - Sedation [Unknown]
  - Somnolence [Unknown]
